FAERS Safety Report 22913467 (Version 2)
Quarter: 2024Q3

REPORT INFORMATION
  Report Type: Report from Study
  Country: US (occurrence: US)
  Receive Date: 20230906
  Receipt Date: 20240718
  Transmission Date: 20241017
  Serious: Yes (Other)
  Sender: TAIHO ONCOLOGY INC
  Company Number: US-TAIHOP-2023-007348

PATIENT
  Age: 75 Year
  Sex: Male

DRUGS (1)
  1. LONSURF [Suspect]
     Active Substance: TIPIRACIL HYDROCHLORIDE\TRIFLURIDINE
     Indication: Appendix cancer
     Dosage: CYCLE 1
     Route: 048

REACTIONS (5)
  - Haemorrhage [Unknown]
  - Neuropathy peripheral [Unknown]
  - Cystitis [Unknown]
  - Oral pain [Unknown]
  - Glossodynia [Unknown]
